FAERS Safety Report 15657805 (Version 3)
Quarter: 2018Q4

REPORT INFORMATION
  Report Type: Spontaneous
  Country: VN (occurrence: VN)
  Receive Date: 20181126
  Receipt Date: 20181218
  Transmission Date: 20190205
  Serious: Yes (Death)
  Sender: FDA-Public Use
  Company Number: VN-GE HEALTHCARE LIFE SCIENCES-2018CSU004722

PATIENT

DRUGS (1)
  1. OMNIPAQUE [Suspect]
     Active Substance: IOHEXOL
     Indication: ADRENAL NEOPLASM
     Dosage: 65 ML, SINGLE
     Route: 042
     Dates: start: 20181116, end: 20181116

REACTIONS (3)
  - Gastrointestinal haemorrhage [Fatal]
  - Multiple organ dysfunction syndrome [Fatal]
  - Anaphylactic reaction [Fatal]

NARRATIVE: CASE EVENT DATE: 20181116
